FAERS Safety Report 11509440 (Version 3)
Quarter: 2015Q4

REPORT INFORMATION
  Report Type: Spontaneous
  Country: US (occurrence: US)
  Receive Date: 20150915
  Receipt Date: 20151130
  Transmission Date: 20160304
  Serious: Yes (Hospitalization)
  Sender: FDA-Public Use
  Company Number: US-BAYER-2015-422749

PATIENT
  Age: 28 Year
  Sex: Female
  Weight: 77.98 kg

DRUGS (1)
  1. MIRENA [Suspect]
     Active Substance: LEVONORGESTREL
     Indication: CONTRACEPTION
     Dosage: 20 MCG/24HR, CONT
     Route: 015
     Dates: start: 20090903, end: 20141024

REACTIONS (7)
  - Embedded device [None]
  - Dyspareunia [None]
  - Device breakage [None]
  - Injury [None]
  - Pain [None]
  - Complication of device removal [None]
  - Device use error [None]

NARRATIVE: CASE EVENT DATE: 2009
